FAERS Safety Report 22540774 (Version 1)
Quarter: 2023Q2

REPORT INFORMATION
  Report Type: Report from Study
  Country: CN (occurrence: CN)
  Receive Date: 20230609
  Receipt Date: 20230609
  Transmission Date: 20230722
  Serious: Yes (Death, Other)
  Sender: FDA-Public Use
  Company Number: CN-SUN PHARMACEUTICAL INDUSTRIES LTD-2023R1-393219

PATIENT
  Age: 55 Year
  Sex: Female

DRUGS (12)
  1. DOXYCYCLINE [Suspect]
     Active Substance: DOXYCYCLINE
     Indication: Legionella infection
     Dosage: UNK
     Route: 065
     Dates: start: 202011
  2. DOXYCYCLINE [Suspect]
     Active Substance: DOXYCYCLINE
     Indication: Enterococcal infection
  3. DOXYCYCLINE [Suspect]
     Active Substance: DOXYCYCLINE
     Indication: Aspergillus infection
  4. DOXYCYCLINE [Suspect]
     Active Substance: DOXYCYCLINE
     Indication: Aspergillus infection
  5. MEROPENEM [Suspect]
     Active Substance: MEROPENEM
     Indication: Legionella infection
     Dosage: UNK
     Route: 065
     Dates: start: 202011
  6. MEROPENEM [Suspect]
     Active Substance: MEROPENEM
     Indication: Enterococcal infection
  7. MEROPENEM [Suspect]
     Active Substance: MEROPENEM
     Indication: Aspergillus infection
  8. MEROPENEM [Suspect]
     Active Substance: MEROPENEM
     Indication: Aspergillus infection
  9. VORICONAZOLE [Suspect]
     Active Substance: VORICONAZOLE
     Indication: Aspergillus infection
     Dosage: UNK
     Route: 065
     Dates: start: 202011
  10. VORICONAZOLE [Suspect]
     Active Substance: VORICONAZOLE
     Indication: Legionella infection
  11. VORICONAZOLE [Suspect]
     Active Substance: VORICONAZOLE
     Indication: Enterococcal infection
  12. VORICONAZOLE [Suspect]
     Active Substance: VORICONAZOLE
     Indication: Aspergillus infection

REACTIONS (1)
  - Treatment failure [Fatal]

NARRATIVE: CASE EVENT DATE: 20201206
